FAERS Safety Report 4710056-4 (Version None)
Quarter: 2005Q3

REPORT INFORMATION
  Report Type: 
  Country: None (occurrence: None)
  Receive Date: 20050706
  Receipt Date: 20050623
  Transmission Date: 20060218
  Serious: Yes (Other)
  Sender: FDA-Public Use
  Company Number: 2005083644

PATIENT
  Age: 61 Year
  Sex: Female

DRUGS (1)
  1. AROMASIN [Suspect]
     Indication: BREAST CANCER
     Dosage: ORAL
     Route: 048
     Dates: start: 20050201, end: 20050501

REACTIONS (4)
  - ATROPHIC VULVOVAGINITIS [None]
  - GASTRIC ULCER [None]
  - GASTRITIS [None]
  - VAGINAL INFECTION [None]
